FAERS Safety Report 8394641-7 (Version None)
Quarter: 2012Q2

REPORT INFORMATION
  Report Type: 
  Country: None (occurrence: None)
  Receive Date: 20120529
  Receipt Date: 20120529
  Transmission Date: 20120825
  Serious: Yes (Disabling)
  Sender: FDA-Public Use
  Company Number: None

PATIENT
  Age: 54 Year
  Sex: Female
  Weight: 81.6475 kg

DRUGS (2)
  1. CYMBALTA [Suspect]
     Indication: FIBROMYALGIA
     Dosage: 60 MG TWICE DAILY PO
     Route: 048
     Dates: start: 20110101, end: 20120509
  2. CYMBALTA [Suspect]
     Indication: BIPOLAR DISORDER
     Dosage: 60 MG TWICE DAILY PO
     Route: 048
     Dates: start: 20110101, end: 20120509

REACTIONS (12)
  - IMPATIENCE [None]
  - SYNCOPE [None]
  - ARTHRALGIA [None]
  - ANGER [None]
  - JOINT RANGE OF MOTION DECREASED [None]
  - INSOMNIA [None]
  - NAUSEA [None]
  - CRYING [None]
  - INFLUENZA LIKE ILLNESS [None]
  - FATIGUE [None]
  - NIGHTMARE [None]
  - THIRST [None]
